FAERS Safety Report 12435653 (Version 1)
Quarter: 2016Q2

REPORT INFORMATION
  Report Type: Spontaneous
  Country: US (occurrence: US)
  Receive Date: 20160603
  Receipt Date: 20160603
  Transmission Date: 20160815
  Serious: No
  Sender: FDA-Public Use
  Company Number: US-ROCHE-1685318

PATIENT
  Sex: Female

DRUGS (1)
  1. XELODA [Suspect]
     Active Substance: CAPECITABINE
     Indication: NEOPLASM MALIGNANT
     Dosage: DOSE: 4 TABLETS, EVERY MORNING THEN 3 TABLETS EVERY NIGHT FOR 14 DAY ON AND 7 DAY OFF
     Route: 048
     Dates: start: 20150508

REACTIONS (2)
  - Joint range of motion decreased [Unknown]
  - Gastrointestinal disorder [Unknown]
